FAERS Safety Report 6816135-X (Version None)
Quarter: 2010Q3

REPORT INFORMATION
  Report Type: 
  Country: None (occurrence: None)
  Receive Date: 20100705
  Receipt Date: 20100624
  Transmission Date: 20110219
  Serious: Yes (Other)
  Sender: FDA-Public Use
  Company Number: US-RB-012485-10

PATIENT
  Age: 12 Year
  Sex: Female

DRUGS (2)
  1. DELSYM CHILDRENS GRAPE 3 OZ [Suspect]
     Dosage: GIVEN 2.5ML OF PRODUCT
     Route: 048
     Dates: start: 20100624
  2. TYLENOL [Concomitant]

REACTIONS (5)
  - AGITATION [None]
  - DIZZINESS [None]
  - HALLUCINATION [None]
  - LACRIMATION INCREASED [None]
  - MYDRIASIS [None]
